FAERS Safety Report 15404068 (Version 1)
Quarter: 2018Q3

REPORT INFORMATION
  Report Type: Spontaneous
  Country: US (occurrence: US)
  Receive Date: 20180919
  Receipt Date: 20180919
  Transmission Date: 20181010
  Serious: No
  Sender: FDA-Public Use
  Company Number: US-AVADEL SPECIALTY PHARMACEUTICALS, LLC-2018AVA00211

PATIENT
  Age: 79 Year
  Sex: Female

DRUGS (10)
  1. MONTELUKAST SODIUM. [Concomitant]
     Active Substance: MONTELUKAST SODIUM
  2. NOCTIVA [Suspect]
     Active Substance: DESMOPRESSIN ACETATE
     Dosage: UNK
     Dates: start: 20180704, end: 201807
  3. LOVASTATIN. [Concomitant]
     Active Substance: LOVASTATIN
  4. IRBESARTAN. [Concomitant]
     Active Substance: IRBESARTAN
  5. AZO [Concomitant]
     Active Substance: PHENAZOPYRIDINE HYDROCHLORIDE
  6. TOPAMAX [Concomitant]
     Active Substance: TOPIRAMATE
  7. CLOPIDOGREL [Concomitant]
     Active Substance: CLOPIDOGREL BISULFATE
  8. VITAMIND D3 [Concomitant]
  9. FLAXSEED [Concomitant]
     Active Substance: FLAX SEED
  10. CARVEDILOL. [Concomitant]
     Active Substance: CARVEDILOL
     Dosage: 12.5 MG, 1X/DAY

REACTIONS (5)
  - Dehydration [Recovered/Resolved]
  - Disorientation [Recovered/Resolved]
  - Dizziness [Recovered/Resolved]
  - Burning sensation [Recovered/Resolved]
  - Thirst [Recovered/Resolved]

NARRATIVE: CASE EVENT DATE: 201807
